FAERS Safety Report 16826376 (Version 5)
Quarter: 2019Q4

REPORT INFORMATION
  Report Type: Spontaneous
  Country: VN (occurrence: VN)
  Receive Date: 20190919
  Receipt Date: 20191018
  Transmission Date: 20200122
  Serious: Yes (Life-Threatening, Other)
  Sender: FDA-Public Use
  Company Number: VN-PFIZER INC-2019397770

PATIENT
  Age: 3 Month
  Sex: Female

DRUGS (2)
  1. CIPROFLOXACIN. [Concomitant]
     Active Substance: CIPROFLOXACIN
     Dosage: UNK
     Dates: start: 20190905, end: 20190910
  2. MERONEM [Suspect]
     Active Substance: MEROPENEM
     Indication: PNEUMONIA MEASLES
     Dosage: 0.4 G, UNK
     Route: 042
     Dates: start: 20190831, end: 20190909

REACTIONS (2)
  - Urticaria [Unknown]
  - Shock [Unknown]

NARRATIVE: CASE EVENT DATE: 20190909
